FAERS Safety Report 24713409 (Version 6)
Quarter: 2025Q1

REPORT INFORMATION
  Report Type: Spontaneous
  Country: ES (occurrence: ES)
  Receive Date: 20241209
  Receipt Date: 20250130
  Transmission Date: 20250409
  Serious: Yes (Hospitalization, Other)
  Sender: PFIZER
  Company Number: ES-SANOFI-AVENTIS-2013SA075625

PATIENT
  Age: 68 Year
  Sex: Female
  Weight: 75 kg

DRUGS (23)
  1. CARBOPLATIN [Suspect]
     Active Substance: CARBOPLATIN
     Indication: Chemotherapy
     Dosage: 840 MG, 1X/DAY
     Route: 065
     Dates: start: 20130701, end: 20130729
  2. CARBOPLATIN [Suspect]
     Active Substance: CARBOPLATIN
     Route: 065
     Dates: start: 20130819
  3. CIPROFLOXACIN [Suspect]
     Active Substance: CIPROFLOXACIN
     Dosage: 500 MG, 2X/DAY (EVERY 12H) (1000 MG, DAILY)
     Route: 065
     Dates: start: 20130709, end: 20130710
  4. CIPROFLOXACIN [Suspect]
     Active Substance: CIPROFLOXACIN
     Route: 065
     Dates: start: 20130712, end: 20130715
  5. DOCETAXEL [Suspect]
     Active Substance: DOCETAXEL
     Indication: Chemotherapy
     Route: 042
     Dates: start: 20130701
  6. METFORMIN HYDROCHLORIDE [Suspect]
     Active Substance: METFORMIN HYDROCHLORIDE
     Indication: Diabetes mellitus
     Dosage: 850 MG, 1X/DAY
     Route: 065
     Dates: start: 201211, end: 201310
  7. FOSFOMYCIN SODIUM [Suspect]
     Active Substance: FOSFOMYCIN SODIUM
     Dosage: 1 G, 1X/DAY
     Route: 065
     Dates: start: 20130704, end: 20130705
  8. AMOXICILLIN\CLAVULANIC ACID [Concomitant]
     Active Substance: AMOXICILLIN\CLAVULANIC ACID
     Dosage: 37.5 MG, 1X/DAY
     Route: 065
     Dates: start: 20130703, end: 20130704
  9. DOMPERIDONE [Concomitant]
     Active Substance: DOMPERIDONE
     Route: 065
     Dates: start: 20130805
  10. FERROUS SULFATE ANHYDROUS [Concomitant]
     Active Substance: FERROUS SULFATE ANHYDROUS
     Route: 065
     Dates: start: 20130729, end: 20130730
  11. NEUPOGEN [Concomitant]
     Active Substance: FILGRASTIM
     Route: 065
     Dates: start: 20130805, end: 20130807
  12. NEUPOGEN [Concomitant]
     Active Substance: FILGRASTIM
     Route: 065
     Dates: start: 20130819, end: 20130820
  13. NEUPOGEN [Concomitant]
     Active Substance: FILGRASTIM
     Route: 065
     Dates: start: 20130820, end: 20130824
  14. PANTOPRAZOLE SODIUM [Concomitant]
     Active Substance: PANTOPRAZOLE SODIUM
     Route: 065
     Dates: start: 201211
  15. ACETAMINOPHEN [Concomitant]
     Active Substance: ACETAMINOPHEN
     Route: 065
     Dates: start: 201211
  16. RANITIDINE [Concomitant]
     Active Substance: RANITIDINE
     Route: 042
     Dates: start: 201211
  17. SIMVASTATIN [Concomitant]
     Active Substance: SIMVASTATIN
     Route: 065
     Dates: start: 201211
  18. TRASTUZUMAB [Concomitant]
     Active Substance: TRASTUZUMAB
     Indication: Breast cancer female
     Dosage: 600 MG 3X/WEEK = 1800 MG WEEKLY
     Route: 058
     Dates: start: 20130701, end: 20130722
  19. TRASTUZUMAB [Concomitant]
     Active Substance: TRASTUZUMAB
     Dosage: 600 MG 3X/WEEK = 1800 MG WEEKLY
     Route: 058
     Dates: start: 20130729, end: 20131001
  20. TRASTUZUMAB [Concomitant]
     Active Substance: TRASTUZUMAB
     Dosage: 600 MG 3X/WEEK = 1800 MG WEEKLY
     Route: 058
     Dates: start: 20131022
  21. TRASTUZUMAB [Concomitant]
     Active Substance: TRASTUZUMAB
     Dosage: 5400 MG 3X/WEEK = 16200 MG WEEKLY
     Route: 058
     Dates: start: 20130701, end: 20130722
  22. TRASTUZUMAB [Concomitant]
     Active Substance: TRASTUZUMAB
     Dosage: 5400 MG 3X/WEEK = 16200 MG WEEKLY
     Route: 058
     Dates: start: 20130729, end: 20131001
  23. TRASTUZUMAB [Concomitant]
     Active Substance: TRASTUZUMAB
     Dosage: 5400 MG 3X/WEEK = 16200 MG WEEKLY
     Route: 058
     Dates: start: 20131022

REACTIONS (3)
  - Diarrhoea [Recovered/Resolved]
  - Acute kidney injury [Recovered/Resolved]
  - Blood creatinine decreased [Unknown]

NARRATIVE: CASE EVENT DATE: 20130706
